FAERS Safety Report 4359051-8 (Version None)
Quarter: 2004Q2

REPORT INFORMATION
  Report Type: 
  Country: None (occurrence: None)
  Receive Date: 20040517
  Receipt Date: 20040427
  Transmission Date: 20050107
  Serious: Yes (Hospitalization, Other)
  Sender: FDA-Public Use
  Company Number: US-BRISTOL-MYERS SQUIBB COMPANY-12579025

PATIENT
  Age: 63 Year
  Sex: Female

DRUGS (12)
  1. ABATACEPT [Suspect]
     Indication: RHEUMATOID ARTHRITIS
     Dosage: BLINDED THERAPY STARTED ON 02-MAY-2001
     Route: 042
     Dates: start: 20020501, end: 20040420
  2. ENBREL [Suspect]
     Route: 058
     Dates: start: 20020619, end: 20040401
  3. CYTOXAN [Suspect]
     Indication: DIFFUSE LARGE B-CELL LYMPHOMA
     Dates: start: 20040506
  4. ADRIAMYCIN PFS [Suspect]
     Indication: DIFFUSE LARGE B-CELL LYMPHOMA
     Dates: start: 20040506
  5. VINCRISTINE [Suspect]
     Indication: DIFFUSE LARGE B-CELL LYMPHOMA
     Dates: start: 20040506
  6. PREDNISONE [Suspect]
     Indication: DIFFUSE LARGE B-CELL LYMPHOMA
     Route: 048
     Dates: start: 20040506
  7. CELEBREX [Concomitant]
     Route: 048
     Dates: start: 20040421, end: 20040503
  8. RELAFEN [Concomitant]
     Dates: start: 20040227, end: 20040420
  9. ACTONEL [Concomitant]
     Dates: start: 20040101
  10. IMITREX [Concomitant]
     Route: 058
     Dates: start: 20010101
  11. ZANTAC [Concomitant]
     Dates: start: 20040401, end: 20040503
  12. CELEXA [Concomitant]
     Dates: start: 20040225, end: 20040418

REACTIONS (8)
  - DIFFUSE LARGE B-CELL LYMPHOMA [None]
  - DISSEMINATED INTRAVASCULAR COAGULATION [None]
  - HYPERGLYCAEMIA [None]
  - HYPOTENSION [None]
  - PNEUMONITIS [None]
  - RENAL FAILURE ACUTE [None]
  - RESPIRATORY FAILURE [None]
  - TUMOUR LYSIS SYNDROME [None]
